FAERS Safety Report 14758711 (Version 1)
Quarter: 2018Q2

REPORT INFORMATION
  Report Type: Spontaneous
  Country: CH (occurrence: CH)
  Receive Date: 20180413
  Receipt Date: 20180413
  Transmission Date: 20180711
  Serious: Yes (Death)
  Sender: FDA-Public Use
  Company Number: CH-MYLANLABS-2018M1023509

PATIENT
  Age: 15 Year

DRUGS (4)
  1. TRAMADOL. [Suspect]
     Active Substance: TRAMADOL
     Indication: PAIN
     Route: 042
  2. PSEUDOEPHEDRINE [Concomitant]
     Active Substance: PSEUDOEPHEDRINE
     Indication: PAIN
     Route: 048
  3. LOXOPROFEN [Concomitant]
     Active Substance: LOXOPROFEN
     Indication: PAIN
     Route: 048
  4. AZELASTINE. [Concomitant]
     Active Substance: AZELASTINE HYDROCHLORIDE
     Indication: PAIN
     Route: 048

REACTIONS (8)
  - Depressed level of consciousness [Fatal]
  - Somnolence [Fatal]
  - Dizziness [Fatal]
  - Shock [Fatal]
  - Pyrexia [Fatal]
  - Dyspnoea [Fatal]
  - Anxiety [Fatal]
  - Hallucination [Fatal]
